FAERS Safety Report 24933513 (Version 2)
Quarter: 2025Q1

REPORT INFORMATION
  Report Type: Spontaneous
  Country: KR (occurrence: KR)
  Receive Date: 20250206
  Receipt Date: 20250211
  Transmission Date: 20250409
  Serious: Yes (Hospitalization)
  Sender: CELLTRION
  Company Number: KR-CELLTRION INC.-2025KR003302

PATIENT

DRUGS (14)
  1. TRUXIMA [Suspect]
     Active Substance: RITUXIMAB-ABBS
     Indication: Product used for unknown indication
     Route: 042
     Dates: start: 20241007, end: 20250109
  2. BENDAMUSTINE HYDROCHLORIDE MONOHYDRATE [Suspect]
     Active Substance: BENDAMUSTINE HYDROCHLORIDE MONOHYDRATE
     Indication: Product used for unknown indication
     Route: 042
     Dates: start: 20241007, end: 20250109
  3. CYTARABINE [Suspect]
     Active Substance: CYTARABINE
     Indication: Product used for unknown indication
     Route: 042
     Dates: start: 20241104, end: 20250109
  4. CYCIN [CIPROFLOXACIN HYDROCHLORIDE] [Concomitant]
     Route: 048
     Dates: start: 20241227, end: 20250122
  5. GASTIIN CR [Concomitant]
     Route: 048
     Dates: start: 20241227, end: 20250129
  6. SULFAMETHOXAZOLE\TRIMETHOPRIM [Concomitant]
     Active Substance: SULFAMETHOXAZOLE\TRIMETHOPRIM
     Route: 048
     Dates: start: 20241227, end: 20250129
  7. BANAN [Concomitant]
     Active Substance: CEFPODOXIME PROXETIL
     Route: 048
     Dates: start: 20250122, end: 20250129
  8. BANAN [Concomitant]
     Active Substance: CEFPODOXIME PROXETIL
     Route: 048
     Dates: start: 20240203
  9. UBACSIN [Concomitant]
     Route: 042
     Dates: start: 20250129, end: 20250203
  10. TRISONKIT [Concomitant]
     Dates: start: 20250129, end: 20250129
  11. TRASPEN [Concomitant]
     Dates: start: 20250129, end: 20250129
  12. AMINO ACIDS\DEXTROSE\ELECTROLYTES NOS\SOYBEAN OIL\VITAMINS [Concomitant]
     Active Substance: AMINO ACIDS\DEXTROSE\ELECTROLYTES NOS\SOYBEAN OIL\VITAMINS
     Route: 042
     Dates: start: 20250129, end: 20250131
  13. PLASMA SOLUTION A [Concomitant]
     Route: 042
     Dates: start: 20250129, end: 20250131
  14. FOTAGEL [Concomitant]
     Route: 048
     Dates: start: 20250203

REACTIONS (4)
  - Localised oedema [Recovered/Resolved]
  - Pain [Recovered/Resolved]
  - Pyrexia [Recovered/Resolved]
  - Parotitis [Recovered/Resolved]

NARRATIVE: CASE EVENT DATE: 20250127
